FAERS Safety Report 6122378-3 (Version None)
Quarter: 2009Q1

REPORT INFORMATION
  Report Type: 
  Country: None (occurrence: None)
  Receive Date: 20090318
  Receipt Date: 20090212
  Transmission Date: 20090719
  Serious: No
  Sender: FDA-Public Use
  Company Number: US-ASTRAZENECA-2009UW04108

PATIENT
  Sex: Female

DRUGS (1)
  1. SYMBICORT [Suspect]
     Dosage: 160 MCG, 1 PUFF TWO TIMES A DAY
     Route: 055
     Dates: start: 20090201

REACTIONS (1)
  - WHEEZING [None]
